FAERS Safety Report 16647752 (Version 1)
Quarter: 2019Q3

REPORT INFORMATION
  Report Type: Spontaneous
  Country: US (occurrence: US)
  Receive Date: 20190730
  Receipt Date: 20190730
  Transmission Date: 20191004
  Serious: No
  Sender: FDA-Public Use
  Company Number: US-009507513-1907USA015769

PATIENT
  Sex: Female

DRUGS (2)
  1. OVIDREL [Suspect]
     Active Substance: CHORIOGONADOTROPIN ALFA
     Indication: INFERTILITY FEMALE
     Dosage: 1 SYRINGE, ONCE FOR 1 DOSE(STRENGTH: 250 MCG/0.5 ML PFS)
     Route: 058
     Dates: start: 20190614
  2. FOLLISTIM AQ [Suspect]
     Active Substance: FOLLITROPIN
     Indication: INFERTILITY FEMALE
     Dosage: 0.09 MILLILITER, QD (STRENGTH:900 IU/1.8ML)
     Route: 058
     Dates: start: 20190614

REACTIONS (2)
  - Muscle spasms [Unknown]
  - Constipation [Unknown]

NARRATIVE: CASE EVENT DATE: 2019
